FAERS Safety Report 7218180-1 (Version None)
Quarter: 2011Q1

REPORT INFORMATION
  Report Type: 
  Country: None (occurrence: None)
  Receive Date: 20110110
  Receipt Date: 20110105
  Transmission Date: 20110831
  Serious: Yes (Hospitalization, Other)
  Sender: FDA-Public Use
  Company Number: CA-ABBOTT-11P-028-0695615-00

PATIENT
  Sex: Female
  Weight: 65.83 kg

DRUGS (5)
  1. GABAPENTIN [Concomitant]
     Indication: NEURALGIA
     Route: 048
     Dates: start: 19980101
  2. MORPHINE [Concomitant]
     Indication: BACK PAIN
     Route: 048
     Dates: start: 19960101
  3. ZOFRAN [Concomitant]
     Indication: NAUSEA
     Route: 048
     Dates: start: 20100501
  4. BACLOFEN [Concomitant]
     Indication: MUSCLE RELAXANT THERAPY
     Route: 048
     Dates: start: 19980101
  5. HUMIRA [Suspect]
     Indication: CROHN'S DISEASE
     Route: 058
     Dates: start: 20101008

REACTIONS (2)
  - GASTROINTESTINAL OBSTRUCTION [None]
  - CONVULSION [None]
